FAERS Safety Report 14425547 (Version 2)
Quarter: 2018Q1

REPORT INFORMATION
  Report Type: Spontaneous
  Country: FR (occurrence: FR)
  Receive Date: 20180123
  Receipt Date: 20180214
  Transmission Date: 20180509
  Serious: Yes (Other)
  Sender: FDA-Public Use
  Company Number: PHHY2018FR010364

PATIENT
  Age: 59 Year
  Sex: Male
  Weight: 103 kg

DRUGS (2)
  1. SIGNIFOR LAR [Suspect]
     Active Substance: PASIREOTIDE
     Indication: ACROMEGALY
     Dosage: 40 MG, QMO (1 INJECTION EVERY 28 WEEKS)
     Route: 030
     Dates: start: 201707, end: 201801
  2. SIGNIFOR LAR [Suspect]
     Active Substance: PASIREOTIDE
     Dosage: 20 MG, UNK
     Route: 065
     Dates: start: 201801

REACTIONS (8)
  - Vision blurred [Unknown]
  - Polyuria [Unknown]
  - Weight decreased [Unknown]
  - Nail growth abnormal [Not Recovered/Not Resolved]
  - Alopecia [Not Recovered/Not Resolved]
  - Hyperglycaemia [Not Recovered/Not Resolved]
  - Polydipsia [Unknown]
  - Fatigue [Unknown]

NARRATIVE: CASE EVENT DATE: 201708
